FAERS Safety Report 12951536 (Version 2)
Quarter: 2016Q4

REPORT INFORMATION
  Report Type: Spontaneous
  Country: US (occurrence: US)
  Receive Date: 20161117
  Receipt Date: 20161221
  Transmission Date: 20170207
  Serious: Yes (Hospitalization)
  Sender: FDA-Public Use
  Company Number: US-NOVOPROD-473072

PATIENT
  Age: 60 Year
  Sex: Female
  Weight: 65.76 kg

DRUGS (5)
  1. LEVEMIR [Suspect]
     Active Substance: INSULIN DETEMIR
     Indication: TYPE 1 DIABETES MELLITUS
     Dosage: 35 U, QD
     Route: 058
     Dates: start: 2012
  2. NOVOLOG [Suspect]
     Active Substance: INSULIN ASPART
     Dosage: SLIDING SCALE, TID
     Route: 058
     Dates: start: 2012
  3. NOVOLOG [Suspect]
     Active Substance: INSULIN ASPART
     Indication: TYPE 1 DIABETES MELLITUS
     Dosage: SLIDING SCALE, TID
     Route: 058
     Dates: start: 2012
  4. NOVOLOG [Suspect]
     Active Substance: INSULIN ASPART
     Dosage: SLIDING SCALE, TID
     Route: 058
     Dates: start: 2012
  5. LEVEMIR [Suspect]
     Active Substance: INSULIN DETEMIR
     Dosage: 35 U, QD
     Route: 058
     Dates: start: 2012

REACTIONS (3)
  - Product quality issue [Recovered/Resolved]
  - Device malfunction [Recovered/Resolved]
  - Blood glucose increased [Recovering/Resolving]
